FAERS Safety Report 23980673 (Version 1)
Quarter: 2024Q2

REPORT INFORMATION
  Report Type: Spontaneous
  Country: NP (occurrence: NP)
  Receive Date: 20240617
  Receipt Date: 20240617
  Transmission Date: 20240715
  Serious: Yes (Hospitalization, Other)
  Sender: FDA-Public Use
  Company Number: NP-ENDO USA, INC.-2024-002518

PATIENT
  Age: 29 Year
  Sex: Female

DRUGS (1)
  1. KETALAR [Suspect]
     Active Substance: KETAMINE HYDROCHLORIDE
     Indication: Substance use
     Dosage: UNK UNKNOWN, UNKNOWN (FOR THE PAST 8 YEARS)
     Route: 065

REACTIONS (2)
  - Sphincter of Oddi dysfunction [Recovered/Resolved]
  - Drug abuse [Unknown]
